FAERS Safety Report 9049532 (Version 4)
Quarter: 2014Q1

REPORT INFORMATION
  Report Type: Spontaneous
  Country: JP (occurrence: JP)
  Receive Date: 20130205
  Receipt Date: 20140319
  Transmission Date: 20141002
  Serious: Yes (Other)
  Sender: FDA-Public Use
  Company Number: PHHY2013JP006720

PATIENT
  Age: 55 Year
  Sex: Female

DRUGS (4)
  1. CICLOSPORIN [Suspect]
     Indication: PROPHYLAXIS AGAINST GRAFT VERSUS HOST DISEASE
  2. METHOTREXATE [Suspect]
     Indication: PROPHYLAXIS AGAINST GRAFT VERSUS HOST DISEASE
  3. BUSULFEX [Concomitant]
  4. CYCLOPHOSPHAMIDE [Concomitant]

REACTIONS (6)
  - Cytomegalovirus infection [Unknown]
  - Acute graft versus host disease [Unknown]
  - Graft versus host disease in skin [Recovering/Resolving]
  - Gastrointestinal haemorrhage [Recovering/Resolving]
  - Cardiac failure [Unknown]
  - Drug ineffective [Unknown]
